FAERS Safety Report 7215819-1 (Version None)
Quarter: 2011Q1

REPORT INFORMATION
  Report Type: 
  Country: None (occurrence: None)
  Receive Date: 20110107
  Receipt Date: 20101119
  Transmission Date: 20110831
  Serious: Yes (Death)
  Sender: FDA-Public Use
  Company Number: GB-ASTRAZENECA-2010SE51510

PATIENT
  Age: 70 Year
  Sex: Male
  Weight: 73.6 kg

DRUGS (6)
  1. HYDROCORTISONE [Concomitant]
     Indication: ADDISON'S DISEASE
     Dosage: FOR YEARS
     Route: 048
  2. FLORINEF [Concomitant]
     Indication: ADDISON'S DISEASE
     Dosage: FOR YEARS
     Route: 048
  3. VALSARTAN [Concomitant]
     Indication: HYPERTENSION
     Dosage: FOR YEARS
     Route: 048
  4. AMLODIPINE [Concomitant]
     Indication: HYPERTENSION
     Dosage: FOR YEARS
     Route: 048
  5. IRESSA [Suspect]
     Indication: LUNG NEOPLASM MALIGNANT
     Route: 048
     Dates: start: 20100811
  6. LEVOTHYROXINE [Concomitant]
     Indication: HYPOTHYROIDISM
     Dosage: FOR YEARS
     Route: 048

REACTIONS (3)
  - FATIGUE [None]
  - RASH [None]
  - DEEP VEIN THROMBOSIS [None]
